FAERS Safety Report 23978152 (Version 1)
Quarter: 2024Q2

REPORT INFORMATION
  Report Type: Spontaneous
  Country: US (occurrence: US)
  Receive Date: 20240614
  Receipt Date: 20240614
  Transmission Date: 20240716
  Serious: Yes (Other)
  Sender: FDA-Public Use
  Company Number: US-HLS-202400163

PATIENT
  Age: 60 Year
  Sex: Male

DRUGS (1)
  1. CLOZARIL [Suspect]
     Active Substance: CLOZAPINE
     Indication: Product used for unknown indication
     Dosage: 750MG DAILY
     Route: 065

REACTIONS (11)
  - Blood pressure decreased [Unknown]
  - COVID-19 [Unknown]
  - Depression [Unknown]
  - Drooling [Unknown]
  - Influenza [Unknown]
  - Myelitis [Unknown]
  - Paralysis [Unknown]
  - Sepsis [Unknown]
  - Somnolence [Unknown]
  - Spinal cord injury [Unknown]
  - Urinary tract infection [Unknown]
